FAERS Safety Report 4323305-1 (Version None)
Quarter: 2004Q1

REPORT INFORMATION
  Report Type: 
  Country: None (occurrence: None)
  Receive Date: 20040323
  Receipt Date: 20031202
  Transmission Date: 20041129
  Serious: No
  Sender: FDA-Public Use
  Company Number: M03-341-173

PATIENT
  Age: 77 Year
  Sex: Male
  Weight: 77 kg

DRUGS (12)
  1. VELCADE [Suspect]
     Indication: MULTIPLE MYELOMA
     Dosage: 1.MG/M2: INTRAVENOUS BOLUS
     Route: 040
     Dates: start: 20031114, end: 20031121
  2. ARANESP [Concomitant]
  3. AREDIA [Concomitant]
  4. COLESTYRAMINE [Concomitant]
  5. DOXAZOSIN MESYLATE [Concomitant]
  6. FUROSEMIDE [Concomitant]
  7. LUPRON [Concomitant]
  8. NORVASC [Concomitant]
  9. OXYCODONE [Concomitant]
  10. PRILOSEC [Concomitant]
  11. TERAZOSIN HCL [Concomitant]
  12. VALSARTAN [Concomitant]

REACTIONS (5)
  - BACK PAIN [None]
  - BODY TEMPERATURE INCREASED [None]
  - COUGH [None]
  - DYSPNOEA [None]
  - RASH [None]
